FAERS Safety Report 6187258-6 (Version None)
Quarter: 2009Q2

REPORT INFORMATION
  Report Type: 
  Country: None (occurrence: None)
  Receive Date: 20090512
  Receipt Date: 20090508
  Transmission Date: 20091009
  Serious: Yes (Hospitalization)
  Sender: FDA-Public Use
  Company Number: JP-BAYER-200910157BYL

PATIENT
  Age: 69 Year
  Sex: Male
  Weight: 54 kg

DRUGS (4)
  1. NEXAVAR [Suspect]
     Indication: RENAL CELL CARCINOMA STAGE IV
     Dosage: UNIT DOSE: 200 MG
     Route: 048
     Dates: start: 20080826
  2. ALEVIATIN [Concomitant]
     Route: 048
     Dates: start: 20080729
  3. MUCOSTA [Concomitant]
     Route: 048
     Dates: start: 20080729
  4. RINDERON [Concomitant]
     Route: 048
     Dates: start: 20080729

REACTIONS (7)
  - ALOPECIA [None]
  - INTESTINAL OBSTRUCTION [None]
  - LIPASE INCREASED [None]
  - PLATELET COUNT DECREASED [None]
  - PYREXIA [None]
  - SOMNOLENCE [None]
  - WHITE BLOOD CELL COUNT DECREASED [None]
